FAERS Safety Report 9373904 (Version 1)
Quarter: 2013Q2

REPORT INFORMATION
  Report Type: Spontaneous
  Country: PE (occurrence: PE)
  Receive Date: 20130628
  Receipt Date: 20130628
  Transmission Date: 20140414
  Serious: Yes (Hospitalization)
  Sender: FDA-Public Use
  Company Number: PE-009507513-1306PER012572

PATIENT
  Sex: Male

DRUGS (1)
  1. VICTRELIS [Suspect]
     Route: 048

REACTIONS (1)
  - Urinary tract infection [Unknown]
